FAERS Safety Report 14199476 (Version 1)
Quarter: 2017Q4

REPORT INFORMATION
  Report Type: Spontaneous
  Country: US (occurrence: None)
  Receive Date: 20171116
  Receipt Date: 20171116
  Transmission Date: 20180321
  Serious: Yes (Other)
  Sender: FDA-Public Use
  Company Number: None

PATIENT
  Age: 34 Year
  Sex: Female

DRUGS (9)
  1. DORZO [Concomitant]
  2. PRENATAL [Concomitant]
     Active Substance: VITAMINS
  3. DOK [Concomitant]
     Active Substance: DOCUSATE SODIUM
  4. PNV TABS [Concomitant]
  5. IBUPROFEN. [Concomitant]
     Active Substance: IBUPROFEN
  6. FERROUS [Concomitant]
     Active Substance: IRON
  7. INDOMETHACIN. [Concomitant]
     Active Substance: INDOMETHACIN
  8. TIMOLOL. [Concomitant]
     Active Substance: TIMOLOL
  9. MAKENA [Suspect]
     Active Substance: HYDROXYPROGESTERONE CAPROATE
     Indication: PREGNANCY
     Dosage: 250MG QDQW IM
     Route: 030
     Dates: start: 20170926

REACTIONS (1)
  - Abortion spontaneous [None]

NARRATIVE: CASE EVENT DATE: 2017
